FAERS Safety Report 6930897-2 (Version None)
Quarter: 2010Q3

REPORT INFORMATION
  Report Type: 
  Country: None (occurrence: None)
  Receive Date: 20100818
  Receipt Date: 20100707
  Transmission Date: 20110219
  Serious: Yes (Other)
  Sender: FDA-Public Use
  Company Number: US-BAXTER-2010BH003419

PATIENT
  Age: 40 Year
  Sex: Female
  Weight: 199 kg

DRUGS (9)
  1. HEPARIN SODIUM INJECTION [Suspect]
     Indication: DEEP VEIN THROMBOSIS
     Route: 042
     Dates: start: 20080125, end: 20080125
  2. HEPARIN SODIUM INJECTION [Suspect]
     Route: 042
     Dates: start: 20080422, end: 20080422
  3. HEPARIN SODIUM INJECTION [Suspect]
     Route: 058
     Dates: start: 20080401, end: 20080401
  4. EXCEDRIN (MIGRAINE) [Concomitant]
     Indication: PRODUCT USED FOR UNKNOWN INDICATION
     Route: 048
  5. WARFARIN [Concomitant]
     Indication: PRODUCT USED FOR UNKNOWN INDICATION
     Route: 065
  6. ASPIRIN [Concomitant]
     Indication: PRODUCT USED FOR UNKNOWN INDICATION
     Route: 065
  7. MORPHINE SULFATE [Concomitant]
     Indication: PRODUCT USED FOR UNKNOWN INDICATION
     Route: 065
  8. PROMETHAZINE HCL [Concomitant]
     Indication: PRODUCT USED FOR UNKNOWN INDICATION
     Route: 065
  9. LOVENOX [Concomitant]
     Indication: PRODUCT USED FOR UNKNOWN INDICATION
     Route: 065

REACTIONS (7)
  - ASTHENIA [None]
  - ERYTHEMA [None]
  - NAUSEA [None]
  - OEDEMA MOUTH [None]
  - SWELLING [None]
  - URTICARIA [None]
  - VOMITING [None]
